FAERS Safety Report 9925292 (Version 1)
Quarter: 2014Q1

REPORT INFORMATION
  Report Type: Spontaneous
  Country: US (occurrence: None)
  Receive Date: 20140225
  Receipt Date: 20140225
  Transmission Date: 20141002
  Serious: Yes (Hospitalization)
  Sender: FDA-Public Use
  Company Number: None

PATIENT
  Age: 59 Year
  Sex: Female
  Weight: 66 kg

DRUGS (1)
  1. 5-FU [Suspect]

REACTIONS (4)
  - Mucosal inflammation [None]
  - Stomatitis [None]
  - Dehydration [None]
  - Malnutrition [None]
